FAERS Safety Report 6162872-2 (Version None)
Quarter: 2009Q2

REPORT INFORMATION
  Report Type: 
  Country: None (occurrence: None)
  Receive Date: 20090421
  Receipt Date: 20081215
  Transmission Date: 20091009
  Serious: No
  Sender: FDA-Public Use
  Company Number: US-ASTRAZENECA-2008UW27969

PATIENT
  Age: 81 Year
  Sex: Male
  Weight: 65.3 kg

DRUGS (7)
  1. TOPROL-XL [Suspect]
     Indication: HYPERTENSION
     Dosage: 100 MG
     Route: 048
  2. TOPROL-XL [Suspect]
     Dosage: 200 MG
     Route: 048
  3. PLAVIX [Concomitant]
  4. LIPITOR [Concomitant]
  5. COUMADIN [Concomitant]
  6. FLOMAX [Concomitant]
  7. WATER PILL [Concomitant]

REACTIONS (3)
  - DYSPNOEA [None]
  - DYSURIA [None]
  - ILL-DEFINED DISORDER [None]
